FAERS Safety Report 11424361 (Version 1)
Quarter: 2015Q3

REPORT INFORMATION
  Report Type: Spontaneous
  Country: FR (occurrence: FR)
  Receive Date: 20150827
  Receipt Date: 20150827
  Transmission Date: 20151125
  Serious: Yes (Life-Threatening, Hospitalization, Other)
  Sender: FDA-Public Use
  Company Number: FR-BAXTER-2015BAX045869

PATIENT
  Age: 62 Year
  Sex: Female

DRUGS (12)
  1. ANAFRANIL [Concomitant]
     Active Substance: CLOMIPRAMINE HYDROCHLORIDE
     Indication: PRODUCT USED FOR UNKNOWN INDICATION
     Route: 065
  2. BACTRIM [Concomitant]
     Active Substance: SULFAMETHOXAZOLE\TRIMETHOPRIM
     Indication: PROPHYLAXIS
     Route: 065
  3. INEXIUM [Concomitant]
     Active Substance: ESOMEPRAZOLE
     Indication: PRODUCT USED FOR UNKNOWN INDICATION
     Route: 065
  4. ENDOXAN 1000 MG, POUDRE POUR SOLUTION INJECTABLE [Suspect]
     Active Substance: CYCLOPHOSPHAMIDE
     Dosage: CYCLE 2: DAY 1 AND DAY 8
     Route: 042
     Dates: start: 20150708, end: 20150715
  5. POMALIDOMIDE [Suspect]
     Active Substance: POMALIDOMIDE
     Dosage: CYCLE 2: FOR 10 DAYS
     Route: 048
     Dates: start: 20150708, end: 20150717
  6. POMALIDOMIDE [Suspect]
     Active Substance: POMALIDOMIDE
     Indication: MONOCLONAL IMMUNOGLOBULIN PRESENT
     Dosage: CYCLE 1: DURING 21 DAYS ON 28 DAYS
     Route: 048
     Dates: start: 20150603
  7. ENDOXAN 1000 MG, POUDRE POUR SOLUTION INJECTABLE [Suspect]
     Active Substance: CYCLOPHOSPHAMIDE
     Indication: MONOCLONAL IMMUNOGLOBULIN PRESENT
     Dosage: CYCLE 1: DAY 1, DAY 8, DAY 15 AND DAY 22
     Route: 042
     Dates: start: 20150603
  8. DEXAMETHASONE. [Suspect]
     Active Substance: DEXAMETHASONE
     Indication: MONOCLONAL IMMUNOGLOBULIN PRESENT
     Dosage: CYCLE 1: ON D1, D2, D3, D4, D15, D16, D17, AND D18
     Route: 048
     Dates: start: 20150603
  9. CACIT D3 [Concomitant]
     Active Substance: CALCIUM\CHOLECALCIFEROL
     Indication: PRODUCT USED FOR UNKNOWN INDICATION
     Route: 065
  10. ASPIRINE [Concomitant]
     Active Substance: ASPIRIN
     Indication: PRODUCT USED FOR UNKNOWN INDICATION
     Route: 065
  11. DEXAMETHASONE. [Suspect]
     Active Substance: DEXAMETHASONE
     Dosage: CYCLE 2: D1, D2, D3, AND D4
     Route: 048
     Dates: start: 20150708, end: 20150711
  12. ZELITREX [Concomitant]
     Active Substance: VALACYCLOVIR HYDROCHLORIDE
     Indication: PROPHYLAXIS
     Route: 065

REACTIONS (3)
  - Hypertensive crisis [Unknown]
  - Arthropathy [Unknown]
  - Interstitial lung disease [Recovering/Resolving]

NARRATIVE: CASE EVENT DATE: 20150715
